FAERS Safety Report 6826359-3 (Version None)
Quarter: 2010Q3

REPORT INFORMATION
  Report Type: 
  Country: None (occurrence: None)
  Receive Date: 20100709
  Receipt Date: 20100629
  Transmission Date: 20110219
  Serious: Yes (Hospitalization)
  Sender: FDA-Public Use
  Company Number: ES-PFIZER INC-2010081857

PATIENT
  Age: 66 Year
  Sex: Male

DRUGS (6)
  1. ALDACTONE [Suspect]
     Dosage: 100 MG, 1X/DAY
     Route: 048
     Dates: start: 20090101, end: 20100415
  2. INSPRA [Interacting]
     Dosage: 25 MG, 1X/DAY
     Route: 048
     Dates: start: 20090101, end: 20100415
  3. PREDNISONE [Interacting]
     Dosage: UNK
     Route: 048
     Dates: start: 20100401, end: 20100415
  4. FUROSEMIDE [Interacting]
     Dosage: 40 MG, 3X/DAY
     Route: 048
     Dates: end: 20100415
  5. ENALAPRIL [Interacting]
     Dosage: 5 MG, 1X/DAY
     Route: 048
     Dates: start: 20090101, end: 20100415
  6. SINTROM [Concomitant]
     Dosage: UNK
     Route: 048
     Dates: end: 20100415

REACTIONS (4)
  - DRUG INTERACTION [None]
  - HYPERKALAEMIA [None]
  - INTERNATIONAL NORMALISED RATIO INCREASED [None]
  - RENAL FAILURE ACUTE [None]
